FAERS Safety Report 6087987-9 (Version None)
Quarter: 2009Q1

REPORT INFORMATION
  Report Type: 
  Country: None (occurrence: None)
  Receive Date: 20090223
  Receipt Date: 20090210
  Transmission Date: 20090719
  Serious: Yes (Death)
  Sender: FDA-Public Use
  Company Number: FR-GENENTECH-277540

PATIENT
  Age: 47 Year
  Sex: Female

DRUGS (6)
  1. MABTHERA [Suspect]
     Indication: PEMPHIGUS
     Dosage: 375 MG/M2, 1/WEEK
     Route: 042
     Dates: start: 20030901
  2. CYCLOPHOSPHAMIDE [Suspect]
     Indication: DRUG USE FOR UNKNOWN INDICATION
  3. COLCHICINE [Suspect]
     Indication: DRUG USE FOR UNKNOWN INDICATION
  4. PREDNISONE TAB [Concomitant]
     Indication: DRUG USE FOR UNKNOWN INDICATION
     Dosage: 20 MG, QD
  5. PREDNISONE TAB [Concomitant]
     Dosage: 15 MG, QD
  6. PREDNISONE TAB [Concomitant]
     Dosage: 17 MG, QD

REACTIONS (2)
  - RENAL AMYLOIDOSIS [None]
  - SEPTIC SHOCK [None]
